FAERS Safety Report 8477152-X (Version None)
Quarter: 2012Q2

REPORT INFORMATION
  Report Type: 
  Country: None (occurrence: None)
  Receive Date: 20120625
  Receipt Date: 20120625
  Transmission Date: 20120825
  Serious: Yes (Life-Threatening, Hospitalization)
  Sender: FDA-Public Use
  Company Number: None

PATIENT
  Age: 81 Year
  Sex: Male
  Weight: 62.3 kg

DRUGS (1)
  1. WARFARIN SODIUM [Suspect]
     Indication: ATRIAL FIBRILLATION
     Dosage: 1 TAB EVERY DAY PO
     Route: 048
     Dates: start: 20070926

REACTIONS (6)
  - ANTICOAGULATION DRUG LEVEL ABOVE THERAPEUTIC [None]
  - ANAEMIA [None]
  - HYPERGLYCAEMIA [None]
  - SINUS TACHYCARDIA [None]
  - ELECTROCARDIOGRAM ST SEGMENT ELEVATION [None]
  - BLOOD PRESSURE INCREASED [None]
